FAERS Safety Report 7287994-4 (Version None)
Quarter: 2011Q1

REPORT INFORMATION
  Report Type: 
  Country: None (occurrence: None)
  Receive Date: 20110207
  Receipt Date: 20110207
  Transmission Date: 20110831
  Serious: Yes (Life-Threatening, Other)
  Sender: FDA-Public Use
  Company Number: None

PATIENT
  Age: 66 Year
  Sex: Male
  Weight: 104.3273 kg

DRUGS (1)
  1. MIRALAX [Suspect]
     Indication: INCORRECT DRUG ADMINISTRATION DURATION
     Dosage: ONE CAPFULL

REACTIONS (1)
  - BLOOD GLUCOSE INCREASED [None]
